FAERS Safety Report 6644406-9 (Version None)
Quarter: 2010Q1

REPORT INFORMATION
  Report Type: 
  Country: None (occurrence: None)
  Receive Date: 20100319
  Receipt Date: 20100319
  Transmission Date: 20100710
  Serious: Yes (Hospitalization)
  Sender: FDA-Public Use
  Company Number: None

PATIENT
  Age: 77 Year
  Sex: Female
  Weight: 64.4108 kg

DRUGS (8)
  1. LIPITOR [Suspect]
     Indication: BLOOD CHOLESTEROL
     Dosage: 1 DAILY 1 DAILY
     Dates: start: 20080901, end: 20090901
  2. SYNTHROID [Concomitant]
  3. BENAZIPRIL [Concomitant]
  4. WATER TABS [Concomitant]
  5. ADULT ASPIRIN [Concomitant]
  6. MPRVASC [Concomitant]
  7. PLAVIX [Concomitant]
  8. CALCIUM + VIT ^D^ [Concomitant]

REACTIONS (6)
  - CHEST PAIN [None]
  - GAIT DISTURBANCE [None]
  - MENISCUS LESION [None]
  - MUSCLE SPASMS [None]
  - MUSCULAR WEAKNESS [None]
  - PAIN IN EXTREMITY [None]
